FAERS Safety Report 5586679-X (Version None)
Quarter: 2008Q1

REPORT INFORMATION
  Report Type: 
  Country: None (occurrence: None)
  Receive Date: 20080110
  Receipt Date: 20071005
  Transmission Date: 20080703
  Serious: No
  Sender: FDA-Public Use
  Company Number: US-BAYER-US-2007-037896

PATIENT
  Age: 29 Year
  Sex: Female
  Weight: 129 kg

DRUGS (1)
  1. YAZ [Suspect]
     Indication: MENSTRUATION IRREGULAR
     Route: 048
     Dates: start: 20061201

REACTIONS (6)
  - BREAST TENDERNESS [None]
  - FOOD CRAVING [None]
  - GENITAL HAEMORRHAGE [None]
  - NIPPLE PAIN [None]
  - UTERINE CERVICAL PAIN [None]
  - WEIGHT INCREASED [None]
